FAERS Safety Report 16012309 (Version 1)
Quarter: 2019Q1

REPORT INFORMATION
  Report Type: Spontaneous
  Country: US (occurrence: US)
  Receive Date: 20190227
  Receipt Date: 20190227
  Transmission Date: 20190418
  Serious: No
  Sender: FDA-Public Use
  Company Number: US-GLAXOSMITHKLINE-US2019030659

PATIENT
  Sex: Male

DRUGS (2)
  1. VENTOLIN HFA [Suspect]
     Active Substance: ALBUTEROL SULFATE
     Dosage: 2 PUFF(S), PRN
     Route: 055
  2. ALBUTEROL INHALATION POWDER [Suspect]
     Active Substance: ALBUTEROL
     Dosage: 2 PUFF(S), PRN
     Route: 055
     Dates: start: 20190209

REACTIONS (2)
  - Wrong technique in device usage process [Unknown]
  - Drug effect incomplete [Unknown]
